FAERS Safety Report 6028934-5 (Version None)
Quarter: 2009Q1

REPORT INFORMATION
  Report Type: 
  Country: None (occurrence: None)
  Receive Date: 20090102
  Receipt Date: 20081222
  Transmission Date: 20090719
  Serious: Yes (Hospitalization)
  Sender: FDA-Public Use
  Company Number: 1000000810

PATIENT
  Age: 57 Year
  Sex: Female

DRUGS (9)
  1. ESCITALOPRAM OXALATE [Suspect]
     Indication: ANXIETY
     Dosage: 10 MG (10 MG, 1 IN 1 D), ORAL
     Route: 048
  2. ESCITALOPRAM OXALATE [Suspect]
     Indication: DEPRESSION
     Dosage: 10 MG (10 MG, 1 IN 1 D), ORAL
     Route: 048
  3. ESCITALOPRAM OXALATE [Suspect]
     Indication: FEAR
     Dosage: 10 MG (10 MG, 1 IN 1 D), ORAL
     Route: 048
  4. ESCITALOPRAM OXALATE [Suspect]
     Indication: POST-TRAUMATIC STRESS DISORDER
     Dosage: 10 MG (10 MG, 1 IN 1 D), ORAL
     Route: 048
  5. BUSCOPAN (20 MILLIGRAM) [Concomitant]
  6. CLONAZEPAM (0.5 MILLIGRAM, TABLETS) [Concomitant]
  7. LORAZEPAM (0.05 MILLIGRAM) [Concomitant]
  8. TYLENOL WITH CODEINE NO 3 (TABLETS) [Concomitant]
  9. ZOPICLONE (7.5 MILLIGRAM, TABLETS) [Concomitant]

REACTIONS (4)
  - ASTHENIA [None]
  - DYSKINESIA [None]
  - FEELING JITTERY [None]
  - TREMOR [None]
